FAERS Safety Report 13905350 (Version 2)
Quarter: 2017Q3

REPORT INFORMATION
  Report Type: Spontaneous
  Country: US (occurrence: US)
  Receive Date: 20170825
  Receipt Date: 20170920
  Transmission Date: 20171127
  Serious: No
  Sender: FDA-Public Use
  Company Number: PHEH2017US025676

PATIENT
  Sex: Female
  Weight: 99.32 kg

DRUGS (3)
  1. HYDROCORTISONE. [Concomitant]
     Active Substance: HYDROCORTISONE
     Indication: PRURITUS
     Dosage: UNK UNK, QD (AS NEEDED)
     Route: 061
  2. CLOBETASOL PROPIONATE. [Suspect]
     Active Substance: CLOBETASOL PROPIONATE
     Indication: PRURITUS
     Dosage: UNK UNK, BID
     Route: 061
  3. VICKS [Concomitant]
     Indication: PRURITUS
     Dosage: UNK UNK, PRN
     Route: 065

REACTIONS (1)
  - Pruritus [Recovered/Resolved]
